FAERS Safety Report 7569078-0 (Version None)
Quarter: 2011Q2

REPORT INFORMATION
  Report Type: 
  Country: None (occurrence: None)
  Receive Date: 20110623
  Receipt Date: 20110615
  Transmission Date: 20111010
  Serious: Yes (Death)
  Sender: FDA-Public Use
  Company Number: DK-ABBOTT-10P-044-0679033-00

PATIENT
  Age: 38 Year
  Sex: Male

DRUGS (11)
  1. MEROPENEM [Concomitant]
     Indication: PRODUCT USED FOR UNKNOWN INDICATION
     Route: 042
  2. ABACAVIR SULFATE/LAMIVUDINE [Concomitant]
     Indication: HIV INFECTION
     Route: 048
     Dates: start: 20100910, end: 20100912
  3. HUMAN ALBUMINE 20% [Concomitant]
     Indication: PRODUCT USED FOR UNKNOWN INDICATION
  4. RITONAVIR [Suspect]
     Indication: HIV INFECTION
     Route: 048
     Dates: start: 20100910, end: 20100912
  5. ENTECAVIR [Concomitant]
     Indication: HEPATITIS B
  6. PANTOPRAZOLE SODIUM [Concomitant]
     Indication: PRODUCT USED FOR UNKNOWN INDICATION
     Route: 042
  7. POTASSIUM EXLIXIR [Concomitant]
     Indication: PRODUCT USED FOR UNKNOWN INDICATION
  8. PREDNISOLONE [Concomitant]
     Indication: PRODUCT USED FOR UNKNOWN INDICATION
  9. EFAVIREXZ/TENOFOVIR/EMTRICITABINE [Concomitant]
     Indication: HIV INFECTION
     Route: 048
     Dates: start: 20100820, end: 20100918
  10. DARUNAVIR ETHANOLATE [Concomitant]
     Indication: HIV INFECTION
     Route: 048
     Dates: start: 20100910, end: 20100912
  11. ZINACEF [Concomitant]
     Indication: PRODUCT USED FOR UNKNOWN INDICATION
     Route: 042

REACTIONS (13)
  - HEPATOSPLENOMEGALY [None]
  - HYPOTENSION [None]
  - ASCITES [None]
  - BLOOD ALBUMIN DECREASED [None]
  - HEPATITIS B [None]
  - DEATH [None]
  - RASH [None]
  - THROMBOCYTOPENIA [None]
  - ENCEPHALOPATHY [None]
  - BONE MARROW FAILURE [None]
  - HUMAN HERPES VIRUS 8 TEST POSITIVE [None]
  - HEPATIC FAILURE [None]
  - ANURIA [None]
